FAERS Safety Report 18807912 (Version 1)
Quarter: 2021Q1

REPORT INFORMATION
  Report Type: Spontaneous
  Country: CN (occurrence: CN)
  Receive Date: 20210129
  Receipt Date: 20210129
  Transmission Date: 20210419
  Serious: Yes (Other)
  Sender: FDA-Public Use
  Company Number: CN-SLATE RUN PHARMACEUTICALS-21CN000389

PATIENT

DRUGS (9)
  1. LEVOFLOXACIN. [Concomitant]
     Active Substance: LEVOFLOXACIN
     Indication: INFECTION
     Dosage: 0.5 GRAM, QD
     Route: 048
     Dates: start: 20190223
  2. VORICONAZOLE. [Suspect]
     Active Substance: VORICONAZOLE
     Dosage: 0.4 GRAM, SINGLE
     Route: 042
     Dates: start: 20190110, end: 20190110
  3. OSELTAMIVIR [Concomitant]
     Active Substance: OSELTAMIVIR
     Indication: ANTIVIRAL TREATMENT
     Dosage: UNK
     Route: 065
     Dates: start: 20190103, end: 20190223
  4. VORICONAZOLE. [Suspect]
     Active Substance: VORICONAZOLE
     Indication: ASPERGILLUS INFECTION
     Dosage: 0.2 GRAM, Q 12 HR
     Route: 042
     Dates: start: 20190111, end: 20190210
  5. LEVOFLOXACIN. [Concomitant]
     Active Substance: LEVOFLOXACIN
     Dosage: UNK
     Route: 065
     Dates: start: 20190103, end: 20190223
  6. VANCOMYCIN [Concomitant]
     Active Substance: VANCOMYCIN
     Indication: BACILLUS INFECTION
     Dosage: 0.5 GRAM, Q 8 HR
     Route: 042
     Dates: start: 20190213, end: 20190223
  7. VANCOMYCIN [Concomitant]
     Active Substance: VANCOMYCIN
     Dosage: 0.5 GRAM, Q 8 HR
     Route: 042
     Dates: start: 20190114, end: 20190129
  8. IMIPENEM AND CILASTATIN [Concomitant]
     Active Substance: CILASTATIN SODIUM\IMIPENEM
     Indication: PNEUMONIA
     Dosage: 1 GRAM, Q 6 HR
     Route: 042
     Dates: start: 20190103, end: 20190115
  9. CEFOPERAZONE + SULBACTAM [Concomitant]
     Active Substance: CEFOPERAZONE SODIUM\SULBACTAM
     Indication: PNEUMONIA
     Dosage: 3 GRAM, Q 8 HR
     Route: 042
     Dates: start: 20190115, end: 20190223

REACTIONS (3)
  - Epilepsy [Recovered/Resolved]
  - Speech disorder [Recovered/Resolved]
  - Altered state of consciousness [Recovered/Resolved]

NARRATIVE: CASE EVENT DATE: 20190210
